FAERS Safety Report 8045630-3 (Version None)
Quarter: 2012Q1

REPORT INFORMATION
  Report Type: 
  Country: None (occurrence: None)
  Receive Date: 20120110
  Receipt Date: 20111227
  Transmission Date: 20120608
  Serious: Yes (Other)
  Sender: FDA-Public Use
  Company Number: 2011MA018134

PATIENT
  Age: 54 Year
  Sex: Male

DRUGS (4)
  1. TETRACAINE POLYGYL STERILE OPHTHALMIC SOLUTION [Suspect]
     Indication: SEBORRHOEIC KERATOSIS
     Dosage: 7 PCT; X3; TOP
     Route: 061
  2. TETRACAINE POLYGYL STERILE OPHTHALMIC SOLUTION [Suspect]
     Indication: MULTIPLE LENTIGINES SYNDROME
     Dosage: 7 PCT; X3; TOP
     Route: 061
  3. LIDOCAINE HCL [Suspect]
     Indication: MULTIPLE LENTIGINES SYNDROME
     Dosage: 23 %; TOP
     Route: 061
  4. LIDOCAINE HCL [Suspect]
     Indication: SEBORRHOEIC KERATOSIS
     Dosage: 23 %; TOP
     Route: 061

REACTIONS (6)
  - RASH VESICULAR [None]
  - BLISTER [None]
  - POST INFLAMMATORY PIGMENTATION CHANGE [None]
  - SKIN EROSION [None]
  - ERYTHEMA [None]
  - REFUSAL OF TREATMENT BY PATIENT [None]
